FAERS Safety Report 7575424-4 (Version None)
Quarter: 2011Q2

REPORT INFORMATION
  Report Type: 
  Country: None (occurrence: None)
  Receive Date: 20110627
  Receipt Date: 20110617
  Transmission Date: 20111010
  Serious: Yes (Hospitalization, Other)
  Sender: FDA-Public Use
  Company Number: US-ASTRAZENECA-2011SE31552

PATIENT
  Age: 52 Year
  Sex: Female
  Weight: 61.2 kg

DRUGS (15)
  1. SEROQUEL [Suspect]
     Route: 048
     Dates: start: 20060201
  2. SEROQUEL [Suspect]
     Indication: INSOMNIA
     Route: 048
     Dates: start: 20050101
  3. OXYCODONE HCL [Concomitant]
     Dates: start: 20090624
  4. ZOFRAN [Concomitant]
     Dates: start: 20110216
  5. COLACE [Concomitant]
     Dates: start: 20101221
  6. SEROQUEL [Suspect]
     Route: 048
     Dates: start: 20060201
  7. PREVACID [Concomitant]
     Dates: start: 20110302
  8. INVESTIGATIONAL DRUG [Suspect]
     Indication: NON-SMALL CELL LUNG CANCER
     Route: 048
     Dates: start: 20110215, end: 20110406
  9. SEROQUEL [Suspect]
     Indication: DEPRESSION
     Route: 048
     Dates: start: 20050101
  10. OXYCONTIN [Suspect]
     Indication: PAIN
     Route: 048
     Dates: start: 20090624
  11. KLONOPIN [Suspect]
     Indication: INSOMNIA
     Route: 048
     Dates: start: 20060220
  12. NIFEREX FORTE [Concomitant]
     Dates: start: 20100201
  13. SOMA [Suspect]
     Route: 065
  14. TRAZODONE HCL [Suspect]
     Indication: INSOMNIA
     Route: 048
     Dates: start: 20110329, end: 20110417
  15. LYRICA [Concomitant]
     Dates: start: 20101221, end: 20110417

REACTIONS (18)
  - MENTAL STATUS CHANGES [None]
  - NAUSEA [None]
  - ANAEMIA [None]
  - DYSPEPSIA [None]
  - OFF LABEL USE [None]
  - THORACIC VERTEBRAL FRACTURE [None]
  - LOSS OF CONSCIOUSNESS [None]
  - NON-SMALL CELL LUNG CANCER [None]
  - ILEUS [None]
  - SPINAL OPERATION [None]
  - PNEUMONIA [None]
  - PAIN [None]
  - PULMONARY MASS [None]
  - MULTIPLE DRUG OVERDOSE [None]
  - OPEN REDUCTION OF FRACTURE [None]
  - ALTERED STATE OF CONSCIOUSNESS [None]
  - HYPOXIA [None]
  - CONSTIPATION [None]
